FAERS Safety Report 18179046 (Version 1)
Quarter: 2020Q3

REPORT INFORMATION
  Report Type: Spontaneous
  Country: DE (occurrence: DE)
  Receive Date: 20200821
  Receipt Date: 20200821
  Transmission Date: 20201103
  Serious: Yes (Hospitalization)
  Sender: FDA-Public Use
  Company Number: DE-TEVA-2020-DE-1815749

PATIENT
  Age: 76 Year
  Sex: Male

DRUGS (11)
  1. HYDROCHLOROTHIAZID/RAMIPRIL [Concomitant]
     Active Substance: HYDROCHLOROTHIAZIDE\RAMIPRIL
     Dosage: .5 DOSAGE FORMS DAILY; 25|5 MG, 0.5?0?0?0
     Route: 048
  2. KREON 25000 [Concomitant]
     Active Substance: PANCRELIPASE
     Dosage: 3 DOSAGE FORMS DAILY; 25.000 IE, 1?1?1?0
     Route: 048
  3. REPAGLINID [Suspect]
     Active Substance: REPAGLINIDE
     Dosage: 6 MILLIGRAM DAILY;  1?1?1?0
     Route: 048
  4. ATORVASTATIN [Concomitant]
     Active Substance: ATORVASTATIN
     Dosage: 20 MILLIGRAM DAILY; 0?0?1?0
     Route: 048
  5. DIGITOXIN [Concomitant]
     Active Substance: DIGITOXIN
     Dosage: .07 MILLIGRAM DAILY;  1?0?0?0
     Route: 048
  6. METFORMIN [Concomitant]
     Active Substance: METFORMIN HYDROCHLORIDE
     Dosage: 1000 MILLIGRAM DAILY;  1?0?1?0
     Route: 048
  7. ALLOPURINOL. [Concomitant]
     Active Substance: ALLOPURINOL
     Dosage: 100 MILLIGRAM DAILY; 0?0?1?0
     Route: 048
  8. PANTOPRAZOL [Concomitant]
     Active Substance: PANTOPRAZOLE SODIUM
     Dosage: 40 MILLIGRAM DAILY;  1?0?0?0
     Route: 048
  9. PHENPROCOUMON [Concomitant]
     Active Substance: PHENPROCOUMON
     Dosage: 3 MG,  BY VALUE
     Route: 048
  10. MACROGOL?1A PHARMA [Concomitant]
     Dosage: 1 DOSAGE FORMS DAILY; NK MG, 1?0?0?0
     Route: 048
  11. CARVEDILOL. [Concomitant]
     Active Substance: CARVEDILOL
     Dosage: 6.25 MILLIGRAM DAILY; 1?0?0?0
     Route: 048

REACTIONS (3)
  - Abdominal pain upper [Unknown]
  - Abdominal pain [Unknown]
  - Pain [Unknown]
